FAERS Safety Report 7474239-5 (Version None)
Quarter: 2011Q2

REPORT INFORMATION
  Report Type: 
  Country: None (occurrence: None)
  Receive Date: 20110511
  Receipt Date: 20110504
  Transmission Date: 20111010
  Serious: Yes (Other)
  Sender: FDA-Public Use
  Company Number: US-ALLERGAN-1106153US

PATIENT
  Age: 38 Year
  Sex: Female

DRUGS (2)
  1. ARTIFICIAL TEARS [Concomitant]
  2. LASTACAFT [Suspect]
     Indication: HYPERSENSITIVITY
     Dosage: USED TWICE ONLY
     Route: 047
     Dates: start: 20110417, end: 20110430

REACTIONS (13)
  - CHEMICAL BURNS OF EYE [None]
  - EYE IRRITATION [None]
  - CONJUNCTIVITIS VIRAL [None]
  - HYPERSENSITIVITY [None]
  - OCULAR HYPERAEMIA [None]
  - EYE PAIN [None]
  - CONJUNCTIVAL HAEMORRHAGE [None]
  - OCULAR ICTERUS [None]
  - EYE PRURITUS [None]
  - CORNEAL ABRASION [None]
  - DRY EYE [None]
  - EYE SWELLING [None]
  - EYE DISCHARGE [None]
